FAERS Safety Report 8173307-2 (Version None)
Quarter: 2012Q1

REPORT INFORMATION
  Report Type: 
  Country: None (occurrence: None)
  Receive Date: 20120229
  Receipt Date: 20120227
  Transmission Date: 20120608
  Serious: Yes (Hospitalization)
  Sender: FDA-Public Use
  Company Number: US-JNJFOC-20120105632

PATIENT
  Sex: Male
  Weight: 29.26 kg

DRUGS (6)
  1. CONCERTA [Suspect]
     Indication: ATTENTION DEFICIT/HYPERACTIVITY DISORDER
     Route: 048
     Dates: start: 20090301, end: 20120106
  2. METHYLPHENIDATE HCL [Suspect]
     Indication: ATTENTION DEFICIT/HYPERACTIVITY DISORDER
     Dosage: 00591-2717-01
     Route: 048
     Dates: start: 20120110, end: 20120112
  3. CONCERTA [Suspect]
     Indication: OPPOSITIONAL DEFIANT DISORDER
     Route: 048
     Dates: start: 20120112
  4. METHYLPHENIDATE HCL [Suspect]
     Indication: OPPOSITIONAL DEFIANT DISORDER
     Dosage: 00591-2717-01
     Route: 048
     Dates: start: 20120110, end: 20120112
  5. CONCERTA [Suspect]
     Route: 048
     Dates: start: 20120112
  6. CONCERTA [Suspect]
     Route: 048
     Dates: start: 20090301, end: 20120106

REACTIONS (9)
  - PSYCHOTIC DISORDER [None]
  - MYDRIASIS [None]
  - DYSARTHRIA [None]
  - CARDIAC DISORDER [None]
  - ANXIETY [None]
  - DIZZINESS [None]
  - DRUG INEFFECTIVE [None]
  - COUGH [None]
  - DRUG DOSE OMISSION [None]
